FAERS Safety Report 13224896 (Version 1)
Quarter: 2017Q1

REPORT INFORMATION
  Report Type: Spontaneous
  Country: US (occurrence: US)
  Receive Date: 20170213
  Receipt Date: 20170213
  Transmission Date: 20170428
  Serious: No
  Sender: FDA-Public Use
  Company Number: PHEH2017US003650

PATIENT

DRUGS (1)
  1. TOBRAMYCIN. [Suspect]
     Active Substance: TOBRAMYCIN
     Indication: PNEUMONIA PSEUDOMONAL
     Dosage: 1 DF, EVERY OTHER DAY
     Route: 055

REACTIONS (2)
  - Malaise [Unknown]
  - Inappropriate schedule of drug administration [Unknown]
